FAERS Safety Report 25036977 (Version 3)
Quarter: 2025Q2

REPORT INFORMATION
  Report Type: Spontaneous
  Country: PH (occurrence: PH)
  Receive Date: 20250304
  Receipt Date: 20250422
  Transmission Date: 20250716
  Serious: Yes (Death)
  Sender: PFIZER
  Company Number: PH-PFIZER INC-PV202500025462

PATIENT
  Sex: Female

DRUGS (2)
  1. VFEND [Suspect]
     Active Substance: VORICONAZOLE
     Indication: Aspergilloma
  2. DIETARY SUPPLEMENT [Concomitant]
     Active Substance: DIETARY SUPPLEMENT

REACTIONS (1)
  - Death [Fatal]

NARRATIVE: CASE EVENT DATE: 20250109
